FAERS Safety Report 7620401-8 (Version None)
Quarter: 2011Q3

REPORT INFORMATION
  Report Type: 
  Country: None (occurrence: None)
  Receive Date: 20110719
  Receipt Date: 20110712
  Transmission Date: 20111222
  Serious: Yes (Life-Threatening, Hospitalization, Other)
  Sender: FDA-Public Use
  Company Number: PHHY2011DE62943

PATIENT
  Age: 72 Year
  Sex: Male
  Weight: 84 kg

DRUGS (10)
  1. PANTOPRAZOLE [Suspect]
     Dosage: 1 DF, (1 IN 1 DAY)
     Route: 048
     Dates: start: 20110121, end: 20110418
  2. XALATAN [Concomitant]
     Dosage: 1X2 DROPS DAILY
     Route: 047
     Dates: start: 20050101
  3. AEROMAX [Concomitant]
     Dosage: 50 UG, DAILY
     Dates: start: 20070101
  4. BERODUAL [Concomitant]
     Dosage: WHEN NEEDED PER MONTH
     Dates: start: 20070101
  5. LEVOTHYROXINE SODIUM [Concomitant]
     Dosage: 100 UG, PER DAY
     Route: 048
  6. TORSEMIDE [Concomitant]
     Dosage: 2 DF,PER DAY
     Route: 048
     Dates: start: 20101201, end: 20110417
  7. DIOVAN [Suspect]
     Dosage: 2 DF,PER DAY (2 TABLETS PER DAY )
     Route: 048
     Dates: start: 20110201, end: 20110417
  8. ACETYLCYSTEINE [Concomitant]
     Dosage: 1 DF, PER DAY
     Route: 048
     Dates: start: 20101201
  9. SPIRIVA [Concomitant]
     Dosage: 18 UG,DAILY
     Dates: start: 20070101
  10. AMLODIPINE [Concomitant]
     Dosage: 1 DF, DAILY
     Route: 048
     Dates: start: 20101201, end: 20110417

REACTIONS (6)
  - CHRONIC OBSTRUCTIVE PULMONARY DISEASE [None]
  - EMBOLISM [None]
  - GLOMERULOSCLEROSIS [None]
  - TUBULOINTERSTITIAL NEPHRITIS [None]
  - RENAL FAILURE ACUTE [None]
  - NEPHROPATHY TOXIC [None]
